FAERS Safety Report 25448830 (Version 1)
Quarter: 2025Q2

REPORT INFORMATION
  Report Type: Spontaneous
  Country: GB (occurrence: GB)
  Receive Date: 20250618
  Receipt Date: 20250618
  Transmission Date: 20250716
  Serious: Yes (Life-Threatening, Hospitalization, Disabling)
  Sender: TEVA
  Company Number: None

PATIENT
  Age: 9 Year
  Sex: Female
  Weight: 25 kg

DRUGS (3)
  1. HYDROCORTISONE [Suspect]
     Active Substance: HYDROCORTISONE
     Indication: Fungal skin infection
     Route: 065
     Dates: start: 20241118
  2. CALCIUM HYDROXIDE [Suspect]
     Active Substance: CALCIUM HYDROXIDE
     Indication: Fungal skin infection
     Route: 065
     Dates: start: 20241118
  3. FORMALDEHYDE [Suspect]
     Active Substance: FORMALDEHYDE
     Indication: Fungal skin infection
     Route: 065
     Dates: start: 20241118

REACTIONS (3)
  - Eczema infected [Recovering/Resolving]
  - Eczema nummular [Recovering/Resolving]
  - Skin weeping [Recovering/Resolving]

NARRATIVE: CASE EVENT DATE: 20250101
